FAERS Safety Report 4747141-7 (Version None)
Quarter: 2005Q3

REPORT INFORMATION
  Report Type: 
  Country: None (occurrence: None)
  Receive Date: 20050815
  Receipt Date: 20040630
  Transmission Date: 20060218
  Serious: Yes (Hospitalization)
  Sender: FDA-Public Use
  Company Number: MEDI-0002074

PATIENT
  Age: 1 Month
  Sex: Male
  Weight: 7.2576 kg

DRUGS (3)
  1. SYNAGIS [Suspect]
     Indication: ANTIVIRAL PROPHYLAXIS
     Dosage: 1 IN 30 D, INTRAMUSCULAR;  86 MG, 1 IN 30 D, INTRAMUSCULAR;  100 MG, 1 IN 30 D, INTRAMUSCULAR
     Route: 030
     Dates: start: 20040114, end: 20040114
  2. SYNAGIS [Suspect]
     Indication: ANTIVIRAL PROPHYLAXIS
     Dosage: 1 IN 30 D, INTRAMUSCULAR;  86 MG, 1 IN 30 D, INTRAMUSCULAR;  100 MG, 1 IN 30 D, INTRAMUSCULAR
     Route: 030
     Dates: start: 20040324
  3. SYNAGIS [Suspect]
     Indication: ANTIVIRAL PROPHYLAXIS
     Dosage: 1 IN 30 D, INTRAMUSCULAR;  86 MG, 1 IN 30 D, INTRAMUSCULAR;  100 MG, 1 IN 30 D, INTRAMUSCULAR
     Route: 030
     Dates: start: 20040420

REACTIONS (1)
  - RESPIRATORY SYNCYTIAL VIRUS INFECTION [None]
